FAERS Safety Report 9070665 (Version 2)
Quarter: 2013Q1

REPORT INFORMATION
  Report Type: Spontaneous
  Country: US (occurrence: US)
  Receive Date: 20130206
  Receipt Date: 20130328
  Transmission Date: 20140127
  Serious: Yes (Hospitalization)
  Sender: FDA-Public Use
  Company Number: US-B.I. PHARMACEUTICALS,INC./RIDGEFIELD-2013-BI-02477BP

PATIENT
  Age: 78 Year
  Sex: Male
  Weight: 111 kg

DRUGS (1)
  1. DULCOLAX TABLETS [Suspect]
     Indication: CONSTIPATION
     Dosage: 5 MG
     Route: 048
     Dates: start: 2007

REACTIONS (2)
  - Arthropathy [Not Recovered/Not Resolved]
  - Constipation [Recovered/Resolved]
